FAERS Safety Report 19732362 (Version 2)
Quarter: 2021Q3

REPORT INFORMATION
  Report Type: Spontaneous
  Country: US (occurrence: US)
  Receive Date: 20210822
  Receipt Date: 20210824
  Transmission Date: 20211014
  Serious: Yes (Life-Threatening, Hospitalization)
  Sender: FDA-Public Use
  Company Number: US-TEVA-2021-US-1942346

PATIENT
  Sex: Male

DRUGS (10)
  1. CLONIDINE. [Suspect]
     Active Substance: CLONIDINE
     Dosage: 1.5 UG/KG ONCE IN 8 HRS
     Route: 065
  2. SERTRALINE [Suspect]
     Active Substance: SERTRALINE HYDROCHLORIDE
     Indication: MAJOR DEPRESSION
     Dosage: 1 DOSAGE FORMS DAILY;
     Route: 064
  3. MIDAZOLAM. [Suspect]
     Active Substance: MIDAZOLAM
     Indication: DRUG WITHDRAWAL SYNDROME NEONATAL
     Dosage: TEST DOSE
     Route: 065
  4. LORAZEPAM. [Suspect]
     Active Substance: LORAZEPAM
     Indication: DRUG WITHDRAWAL SYNDROME NEONATAL
     Dosage: .2 MG/KG DAILY; ADJUVANT THERAPY INITIATED ON DAY OF LIFE 5
     Route: 065
  5. VENLAFAXINE [Suspect]
     Active Substance: VENLAFAXINE HYDROCHLORIDE
     Indication: MAJOR DEPRESSION
     Dosage: 1 DOSAGE FORMS DAILY; EXTENDED?RELEASE TABLET
     Route: 064
  6. TRAZODONE [Suspect]
     Active Substance: TRAZODONE HYDROCHLORIDE
     Indication: MAJOR DEPRESSION
     Dosage: 1 DOSAGE FORMS DAILY; EXTENDED?RELEASE TABLET
     Route: 064
  7. BUSPIRONE [Suspect]
     Active Substance: BUSPIRONE HYDROCHLORIDE
     Indication: MAJOR DEPRESSION
     Dosage: 3 DOSAGE FORMS DAILY; EXTENDED?RELEASE TABLET; THREE TIMES DAILY
     Route: 064
  8. CLONIDINE. [Suspect]
     Active Substance: CLONIDINE
     Indication: DRUG WITHDRAWAL SYNDROME NEONATAL
     Dosage: 1 UG/KG ONCE IN 3 HRS
     Route: 065
  9. CLONIDINE. [Suspect]
     Active Substance: CLONIDINE
     Dosage: 4UG/KG ONCE IN 3 HRS
     Route: 065
  10. CLONIDINE. [Suspect]
     Active Substance: CLONIDINE
     Dosage: 3 UG/KG ONCE IN 3 HRS
     Route: 065

REACTIONS (5)
  - Bradycardia neonatal [Recovering/Resolving]
  - Off label use [Unknown]
  - Drug withdrawal syndrome neonatal [Recovering/Resolving]
  - Serotonin syndrome [Recovering/Resolving]
  - Foetal exposure during pregnancy [Unknown]
